FAERS Safety Report 17209341 (Version 2)
Quarter: 2020Q1

REPORT INFORMATION
  Report Type: Report from Study
  Country: DE (occurrence: DE)
  Receive Date: 20191227
  Receipt Date: 20200110
  Transmission Date: 20200409
  Serious: Yes (Death, Hospitalization)
  Sender: FDA-Public Use
  Company Number: DE-ACTELION-A-CH2018-179543

PATIENT
  Age: 78 Year
  Sex: Male
  Weight: 84 kg

DRUGS (22)
  1. PANTOPRAZOLE [Concomitant]
     Active Substance: PANTOPRAZOLE
     Indication: PROPHYLAXIS
     Dosage: UNK
     Route: 048
     Dates: start: 201707, end: 2019
  2. OPSUMIT [Suspect]
     Active Substance: MACITENTAN
     Indication: PULMONARY ARTERIAL HYPERTENSION
     Dosage: 10 MG, QD
     Route: 048
     Dates: start: 20180615, end: 20191228
  3. IPRAMOL TEVA [Concomitant]
     Indication: PROPHYLAXIS
     Dosage: UNK
     Route: 055
     Dates: start: 20180612, end: 20180618
  4. XARELTO [Concomitant]
     Active Substance: RIVAROXABAN
     Dosage: UNK
     Route: 048
     Dates: start: 20180619, end: 20191226
  5. TOREM [Concomitant]
     Active Substance: TORSEMIDE
     Indication: PULMONARY ARTERIAL HYPERTENSION
     Dosage: UNK, PRN
     Route: 048
     Dates: start: 201502
  6. NEXIUM [Concomitant]
     Active Substance: ESOMEPRAZOLE MAGNESIUM
     Indication: PROPHYLAXIS
     Dosage: UNK
     Route: 048
     Dates: start: 20191227
  7. KALINOR-BRAUSETABLETTEN [Concomitant]
     Active Substance: POTASSIUM CARBONATE\POTASSIUM CITRATE
     Indication: BLOOD POTASSIUM DECREASED
     Dosage: UNK, PRN
     Route: 048
     Dates: start: 20180617, end: 20191220
  8. METFORMIN [Concomitant]
     Active Substance: METFORMIN HYDROCHLORIDE
     Dosage: UNK
     Route: 048
     Dates: start: 20191226, end: 20191226
  9. OXYGEN. [Concomitant]
     Active Substance: OXYGEN
     Indication: HYPOXIA
     Dosage: UNK
     Route: 055
     Dates: start: 201709
  10. KALINOR RETARD P [Concomitant]
     Active Substance: POTASSIUM CHLORIDE
     Indication: HYPOKALAEMIA
     Dosage: UNK
     Route: 048
     Dates: start: 20191220, end: 20191226
  11. COTRIM FORTE [Concomitant]
     Active Substance: SULFAMETHOXAZOLE\TRIMETHOPRIM
     Indication: PNEUMONIA
     Dosage: UNK
     Route: 048
     Dates: start: 201709, end: 201710
  12. XARELTO [Concomitant]
     Active Substance: RIVAROXABAN
     Indication: ATRIAL FIBRILLATION
     Dosage: UNK
     Route: 048
     Dates: start: 2013, end: 20180612
  13. CLEXANE [Concomitant]
     Active Substance: ENOXAPARIN SODIUM
     Indication: PROPHYLAXIS
     Dosage: UNK
     Route: 058
     Dates: start: 20191217
  14. FUROSEMID [Concomitant]
     Active Substance: FUROSEMIDE
     Indication: PULMONARY ARTERIAL HYPERTENSION
     Dosage: UNK, PRN
     Route: 042
     Dates: start: 20180613, end: 20180615
  15. CLEXANE DUO [Concomitant]
     Active Substance: ENOXAPARIN SODIUM
     Indication: PROPHYLAXIS
     Dosage: UNK
     Route: 058
     Dates: start: 20180612, end: 20180618
  16. ZOLPI-Q [Concomitant]
     Indication: SLEEP DISORDER
     Dosage: UNK, PRN
     Route: 048
     Dates: start: 201707, end: 20191225
  17. CLEXANE [Concomitant]
     Active Substance: ENOXAPARIN SODIUM
     Dosage: UNK
     Route: 058
     Dates: start: 20180612, end: 20180618
  18. ADCIRCA [Concomitant]
     Active Substance: TADALAFIL
     Indication: PULMONARY ARTERIAL HYPERTENSION
     Dosage: 20 MG, QD
     Route: 048
     Dates: start: 201502, end: 20150224
  19. TERBINAFIN [Concomitant]
     Active Substance: TERBINAFINE
     Indication: FUNGAL INFECTION
     Dosage: UNK
     Route: 048
     Dates: start: 2017
  20. METFORMIN [Concomitant]
     Active Substance: METFORMIN HYDROCHLORIDE
     Indication: TYPE 2 DIABETES MELLITUS
     Dosage: UNK
     Route: 048
     Dates: end: 20170919
  21. PREDNISOLON [Concomitant]
     Active Substance: PREDNISOLONE
     Indication: VASCULITIS
     Dosage: UNK, PRN
     Route: 048
     Dates: start: 20170701, end: 2019
  22. OXYGEN. [Concomitant]
     Active Substance: OXYGEN
     Indication: OXYGEN THERAPY

REACTIONS (16)
  - Dyspnoea [Fatal]
  - C-reactive protein increased [Fatal]
  - Pulmonary arterial hypertension [Fatal]
  - Renal failure [Unknown]
  - Candida infection [Unknown]
  - Cardiac failure [Fatal]
  - Blood creatinine increased [Unknown]
  - Dysphagia [Recovered/Resolved]
  - Pneumonia [Fatal]
  - Productive cough [Fatal]
  - Bladder catheterisation [Unknown]
  - Oedema peripheral [Unknown]
  - Oxygen saturation decreased [Fatal]
  - Urinary retention [Not Recovered/Not Resolved]
  - Pyrexia [Fatal]
  - Lung infiltration [Fatal]

NARRATIVE: CASE EVENT DATE: 20180925
